FAERS Safety Report 13299523 (Version 1)
Quarter: 2017Q1

REPORT INFORMATION
  Report Type: Spontaneous
  Country: BE (occurrence: BE)
  Receive Date: 20170306
  Receipt Date: 20170306
  Transmission Date: 20170428
  Serious: Yes (Death, Other)
  Sender: FDA-Public Use
  Company Number: BE-PFIZER INC-2017058084

PATIENT
  Age: 67 Year
  Sex: Male
  Weight: 75 kg

DRUGS (14)
  1. KETALAR [Suspect]
     Active Substance: KETAMINE HYDROCHLORIDE
     Dosage: 50 MG/ML, AT 2 CC/ H, 1X/DAY
     Route: 042
     Dates: start: 20170122, end: 20170123
  2. CLEXANE [Concomitant]
     Active Substance: ENOXAPARIN SODIUM
     Dosage: 40 MG, 1X/DAY
     Route: 042
     Dates: start: 20170107, end: 20170210
  3. KETALAR [Suspect]
     Active Substance: KETAMINE HYDROCHLORIDE
     Indication: ANAESTHESIA
     Dosage: 50 MG/ML, AT 5 CC/ H, 250 MG/ H 1X/DAY
     Route: 042
     Dates: start: 20170112, end: 20170120
  4. KETALAR [Suspect]
     Active Substance: KETAMINE HYDROCHLORIDE
     Dosage: 50 MG/ML, AT 1 CC/ H, 1X/DAY
     Route: 042
     Dates: start: 20170123, end: 20170124
  5. REMERGON [Concomitant]
     Active Substance: MIRTAZAPINE
     Dosage: 30 MG, 1X/DAY
     Route: 048
     Dates: start: 20170107, end: 20170116
  6. DIPRIVAN [Concomitant]
     Active Substance: PROPOFOL
     Dosage: 10 CC/ HOUR
     Route: 042
     Dates: start: 20170108, end: 20170119
  7. CORDARONE [Interacting]
     Active Substance: AMIODARONE HYDROCHLORIDE
     Dosage: 150 MG, 6 AMPOULES / 250 ML
     Dates: start: 20170115, end: 20170131
  8. KETALAR [Suspect]
     Active Substance: KETAMINE HYDROCHLORIDE
     Dosage: 50 MG/ML, AT 3 CC/ H, 1X/DAY
     Route: 042
     Dates: start: 20170121, end: 20170122
  9. PANTOMED /01263204/ [Concomitant]
     Active Substance: PANTOPRAZOLE SODIUM
     Dosage: 40 MG, 2X/DAY
     Route: 042
     Dates: start: 20170107, end: 20170210
  10. ERYTHROMYCIN. [Interacting]
     Active Substance: ERYTHROMYCIN
     Indication: IMPAIRED GASTRIC EMPTYING
     Dosage: 250 MG, 4X/DAY
     Route: 042
     Dates: start: 20170123, end: 20170208
  11. DIFLUCAN [Interacting]
     Active Substance: FLUCONAZOLE
     Dosage: 200 MG, 1X/DAY
     Route: 042
     Dates: start: 20170120, end: 20170123
  12. ISOGEN [Concomitant]
     Dosage: 2.5 MG, 1X/DAY
     Route: 048
     Dates: start: 20170107, end: 20170210
  13. MIDAZOLAM [Concomitant]
     Active Substance: MIDAZOLAM HYDROCHLORIDE
     Dosage: 8 CC/H
     Route: 042
     Dates: start: 20170118, end: 20170124
  14. KETALAR [Suspect]
     Active Substance: KETAMINE HYDROCHLORIDE
     Dosage: 50 MG/ML, AT 4 CC/ H, 1X/DAY
     Route: 042
     Dates: start: 20170120, end: 20170121

REACTIONS (11)
  - Coma [Recovered/Resolved]
  - Cholelithiasis [Unknown]
  - Dyskinesia [Recovering/Resolving]
  - Drug interaction [Fatal]
  - Impaired gastric emptying [Unknown]
  - Sepsis [Fatal]
  - Hepatic failure [Fatal]
  - Language disorder [Not Recovered/Not Resolved]
  - Pancreatitis [Unknown]
  - Trismus [Recovering/Resolving]
  - Hyponatraemia [Unknown]

NARRATIVE: CASE EVENT DATE: 20170118
